FAERS Safety Report 19584876 (Version 1)
Quarter: 2021Q3

REPORT INFORMATION
  Report Type: Spontaneous
  Country: US (occurrence: US)
  Receive Date: 20210720
  Receipt Date: 20210720
  Transmission Date: 20211014
  Serious: Yes (Disabling, Other)
  Sender: FDA-Public Use
  Company Number: US-PFIZER INC-2021575568

PATIENT
  Age: 58 Year
  Sex: Female
  Weight: 104.33 kg

DRUGS (2)
  1. DISOPYRAMIDE [Suspect]
     Active Substance: DISOPYRAMIDE
     Indication: HYPERTROPHIC CARDIOMYOPATHY
     Dosage: TWO, 100MG CAPSULES BY MOUTH, THREE TIMES A DAY
     Route: 048
     Dates: start: 201803
  2. NORPACE CR [Suspect]
     Active Substance: DISOPYRAMIDE PHOSPHATE
     Indication: HYPERTROPHIC CARDIOMYOPATHY
     Dosage: TWO, 150MG CAPSULES, TWICE A DAY
     Dates: start: 201803

REACTIONS (13)
  - Dry mouth [Not Recovered/Not Resolved]
  - Haemorrhoids [Unknown]
  - Malaise [Unknown]
  - Constipation [Recovering/Resolving]
  - Anal fissure [Unknown]
  - Gingival disorder [Unknown]
  - Choking [Unknown]
  - Off label use [Unknown]
  - Dyschezia [Recovering/Resolving]
  - Dry eye [Not Recovered/Not Resolved]
  - Loss of personal independence in daily activities [Unknown]
  - Dysphagia [Unknown]
  - Tooth fracture [Unknown]

NARRATIVE: CASE EVENT DATE: 201803
